FAERS Safety Report 9694485 (Version 3)
Quarter: 2014Q1

REPORT INFORMATION
  Report Type: Spontaneous
  Country: US (occurrence: US)
  Receive Date: 20131118
  Receipt Date: 20140115
  Transmission Date: 20141002
  Serious: No
  Sender: FDA-Public Use
  Company Number: US-009507513-1311USA007230

PATIENT
  Age: 90 Year
  Sex: Female

DRUGS (4)
  1. OXYTROL FOR WOMEN [Suspect]
     Indication: HYPERTONIC BLADDER
     Dosage: 1 DF, Q4D
     Route: 062
     Dates: start: 20131001, end: 20131117
  2. OXYTROL FOR WOMEN [Suspect]
     Dosage: 1 DF, Q4D
     Route: 062
  3. LIPITOR [Concomitant]
     Indication: BLOOD CHOLESTEROL
     Dosage: UNK, UNKNOWN
  4. ATENOLOL [Concomitant]
     Indication: BLOOD PRESSURE
     Dosage: UNK, UNKNOWN

REACTIONS (1)
  - Drug ineffective [Unknown]
